FAERS Safety Report 6897384-1 (Version None)
Quarter: 2010Q3

REPORT INFORMATION
  Report Type: 
  Country: None (occurrence: None)
  Receive Date: 20100802
  Receipt Date: 20070508
  Transmission Date: 20110219
  Serious: Yes (Other)
  Sender: FDA-Public Use
  Company Number: US-PFIZER INC-2007038237

PATIENT
  Age: 56 Year
  Sex: Female
  Weight: 101.2 kg

DRUGS (1)
  1. PREGABALIN [Suspect]

REACTIONS (2)
  - NAUSEA [None]
  - VOMITING [None]
